FAERS Safety Report 6698789-4 (Version None)
Quarter: 2010Q2

REPORT INFORMATION
  Report Type: 
  Country: None (occurrence: None)
  Receive Date: 20100426
  Receipt Date: 20100426
  Transmission Date: 20101027
  Serious: Yes (Other)
  Sender: FDA-Public Use
  Company Number: None

PATIENT
  Sex: Female
  Weight: 52.3 kg

DRUGS (1)
  1. TYLENOL EXTRA STRENGTH RAPID RELEASE GELS SEE SECTION 5 FOR COMPLETE D [Suspect]
     Indication: HEADACHE
     Dosage: 2 GELCAPS ONCE ORALLY
     Route: 048
     Dates: start: 20100424

REACTIONS (4)
  - ABDOMINAL PAIN [None]
  - DIARRHOEA [None]
  - NAUSEA [None]
  - VOMITING [None]
